FAERS Safety Report 8459027-5 (Version None)
Quarter: 2012Q2

REPORT INFORMATION
  Report Type: 
  Country: None (occurrence: None)
  Receive Date: 20120622
  Receipt Date: 20120618
  Transmission Date: 20120825
  Serious: Yes (Hospitalization, Other)
  Sender: FDA-Public Use
  Company Number: US-PFIZER INC-2012042254

PATIENT
  Sex: Male

DRUGS (6)
  1. CARBAMAZEPINE [Concomitant]
     Indication: BIPOLAR DISORDER
     Dosage: UNK
     Dates: start: 20090101, end: 20100101
  2. CELEXA [Concomitant]
     Indication: DEPRESSION
  3. CHANTIX [Suspect]
     Indication: SMOKING CESSATION THERAPY
     Dosage: 0.5MG AND 1MG
     Dates: start: 20100303, end: 20100714
  4. HALDOL [Concomitant]
     Indication: BIPOLAR DISORDER
     Dosage: UNK
     Dates: start: 20090101, end: 20100101
  5. HALDOL [Concomitant]
     Indication: AGITATION
  6. CELEXA [Concomitant]
     Indication: BIPOLAR DISORDER
     Dosage: UNK
     Dates: start: 20090101, end: 20100101

REACTIONS (5)
  - SUICIDE ATTEMPT [None]
  - INTENTIONAL OVERDOSE [None]
  - AGITATION [None]
  - MOOD SWINGS [None]
  - DEPRESSION [None]
